FAERS Safety Report 9390204 (Version 1)
Quarter: 2013Q3

REPORT INFORMATION
  Report Type: Spontaneous
  Country: US (occurrence: US)
  Receive Date: 20130708
  Receipt Date: 20130708
  Transmission Date: 20140515
  Serious: Yes (Hospitalization)
  Sender: FDA-Public Use
  Company Number: US-AMGEN-USASP2013045870

PATIENT
  Age: 61 Year
  Sex: Female

DRUGS (1)
  1. ENBREL [Suspect]
     Indication: RHEUMATOID ARTHRITIS
     Dosage: 50 MG, QWK
     Route: 065
     Dates: start: 20041204

REACTIONS (4)
  - Breast cellulitis [Recovered/Resolved]
  - Breast haematoma [Recovered/Resolved]
  - Postoperative wound complication [Not Recovered/Not Resolved]
  - Impaired healing [Not Recovered/Not Resolved]
